FAERS Safety Report 11726667 (Version 1)
Quarter: 2015Q4

REPORT INFORMATION
  Report Type: Spontaneous
  Country: US (occurrence: US)
  Receive Date: 20151112
  Receipt Date: 20151112
  Transmission Date: 20160304
  Serious: Yes (Other)
  Sender: FDA-Public Use
  Company Number: US-009507513-1511USA005380

PATIENT
  Sex: Female

DRUGS (2)
  1. GRASTEK [Suspect]
     Active Substance: PHLEUM PRATENSE POLLEN
     Dosage: UNK
     Route: 060
  2. RAGWITEK [Suspect]
     Active Substance: AMBROSIA ARTEMISIIFOLIA POLLEN
     Dosage: 12 AMB A1-U, DOSE AND FREQUENCY UNKNOWN
     Route: 048

REACTIONS (1)
  - Throat tightness [Recovered/Resolved]
